FAERS Safety Report 12630469 (Version 5)
Quarter: 2021Q3

REPORT INFORMATION
  Report Type: Spontaneous
  Country: US (occurrence: US)
  Receive Date: 20160808
  Receipt Date: 20210901
  Transmission Date: 20211014
  Serious: No
  Sender: FDA-Public Use
  Company Number: US-PFIZER INC-2016345843

PATIENT
  Age: 40 Year
  Sex: Female
  Weight: 71 kg

DRUGS (7)
  1. FLUOXETINE [Concomitant]
     Active Substance: FLUOXETINE HYDROCHLORIDE
     Indication: DEPRESSION
     Dosage: 40 MG, DAILY
     Route: 048
     Dates: start: 2001
  2. RAPAMUNE [Suspect]
     Active Substance: SIROLIMUS
     Dosage: 2 DF, WEEKLY 1 PILL MON + FRI.
     Dates: start: 201512
  3. RAPAMUNE [Suspect]
     Active Substance: SIROLIMUS
     Indication: LUNG NEOPLASM MALIGNANT
     Dosage: 2 MG, 3X/DAY
     Route: 048
     Dates: start: 20150130, end: 20150216
  4. RAPAMUNE [Suspect]
     Active Substance: SIROLIMUS
     Dosage: UNK
     Dates: start: 201504, end: 20150706
  5. RAPAMUNE [Suspect]
     Active Substance: SIROLIMUS
     Dosage: UNK
  6. RAPAMUNE [Suspect]
     Active Substance: SIROLIMUS
     Dosage: 2 MG, 1X/DAY
     Route: 048
     Dates: start: 20150303
  7. RAPAMUNE [Suspect]
     Active Substance: SIROLIMUS
     Dosage: 6 MG (THREE TABLES BY MOUTH DAILY THREE TIMES A WEEK)
     Route: 048

REACTIONS (5)
  - Gingival bleeding [Recovered/Resolved]
  - Glossodynia [Recovered/Resolved]
  - Off label use [Unknown]
  - Stomatitis [Recovered/Resolved]
  - Intentional product misuse [Unknown]

NARRATIVE: CASE EVENT DATE: 20150130
